FAERS Safety Report 20430123 (Version 1)
Quarter: 2022Q1

REPORT INFORMATION
  Report Type: Report from Study
  Country: FR (occurrence: FR)
  Receive Date: 20220204
  Receipt Date: 20220204
  Transmission Date: 20220424
  Serious: Yes (Other)
  Sender: FDA-Public Use
  Company Number: FR-SERVIER-S20003798

PATIENT

DRUGS (7)
  1. PEGASPARGASE [Suspect]
     Active Substance: PEGASPARGASE
     Indication: Acute lymphocytic leukaemia
     Dosage: 4050 IU, QD ON D12, D26
     Route: 042
     Dates: start: 20200107, end: 20200107
  2. TN UNSPECIFIED [Concomitant]
     Indication: Acute lymphocytic leukaemia
     Dosage: 97.5 MG, QD,D8 TO D28
     Route: 048
     Dates: start: 20200103, end: 20200123
  3. TN UNSPECIFIED [Concomitant]
     Indication: Acute lymphocytic leukaemia
     Dosage: 2 MG, ON D8, D15, D22
     Route: 042
     Dates: start: 20200103, end: 20200117
  4. TN UNSPECIFIED [Concomitant]
     Indication: Acute lymphocytic leukaemia
     Dosage: 48 MG, ON D8, D15, D22
     Route: 042
     Dates: start: 20200103, end: 20200117
  5. TN UNSPECIFIED [Concomitant]
     Indication: Acute lymphocytic leukaemia
     Dosage: 15 MG, ON D9, D13, D24
     Route: 037
     Dates: start: 20200104, end: 20200119
  6. TN UNSPECIFIED [Concomitant]
     Indication: Acute lymphocytic leukaemia
     Dosage: 15 MG, ON D9, D13, D24
     Route: 037
     Dates: start: 20200104, end: 20200119
  7. TN UNSPECIFIED [Concomitant]
     Indication: Acute lymphocytic leukaemia
     Dosage: 30 MG, ON D9, D13, D24
     Route: 037
     Dates: start: 20200104, end: 20200119

REACTIONS (3)
  - Mucosal inflammation [Not Recovered/Not Resolved]
  - Large intestine infection [Not Recovered/Not Resolved]
  - Hepatic cytolysis [Recovering/Resolving]

NARRATIVE: CASE EVENT DATE: 20200113
